FAERS Safety Report 25599716 (Version 1)
Quarter: 2025Q3

REPORT INFORMATION
  Report Type: Other
  Country: CA (occurrence: CA)
  Receive Date: 20250724
  Receipt Date: 20250724
  Transmission Date: 20251021
  Serious: Yes (Other)
  Sender: APOTEX
  Company Number: CA-PGRTD-001137163

PATIENT

DRUGS (1)
  1. MOMETASONE [Suspect]
     Active Substance: MOMETASONE
     Indication: Vasomotor rhinitis
     Route: 065

REACTIONS (3)
  - Dacryocystitis [Not Recovered/Not Resolved]
  - Dacryocanaliculitis [Not Recovered/Not Resolved]
  - Blepharitis [Not Recovered/Not Resolved]
